FAERS Safety Report 4326222-6 (Version None)
Quarter: 2004Q1

REPORT INFORMATION
  Report Type: 
  Country: None (occurrence: None)
  Receive Date: 20040323
  Receipt Date: 20040114
  Transmission Date: 20041129
  Serious: No
  Sender: FDA-Public Use
  Company Number: USA040156550

PATIENT
  Age: 58 Year
  Sex: Male
  Weight: 73 kg

DRUGS (1)
  1. CIALIS [Suspect]
     Indication: ERECTILE DYSFUNCTION
     Dosage: 20 MG/DAY
     Dates: start: 20040113

REACTIONS (4)
  - ABDOMINAL PAIN [None]
  - DYSPEPSIA [None]
  - HEADACHE [None]
  - MUSCLE TIGHTNESS [None]
